FAERS Safety Report 21618186 (Version 2)
Quarter: 2023Q1

REPORT INFORMATION
  Report Type: Report from Study
  Country: US (occurrence: US)
  Receive Date: 20221119
  Receipt Date: 20230120
  Transmission Date: 20230417
  Serious: Yes (Hospitalization, Other)
  Sender: FDA-Public Use
  Company Number: US-002147023-NVSC2022US257520

PATIENT
  Sex: Male

DRUGS (3)
  1. COSENTYX [Suspect]
     Active Substance: SECUKINUMAB
     Indication: Psoriasis
     Dosage: 300 MG, QW (ONCE A WEEK)
     Route: 058
  2. COSENTYX [Suspect]
     Active Substance: SECUKINUMAB
     Dosage: UNK (2ND INJECTION)
     Route: 065
  3. COSENTYX [Suspect]
     Active Substance: SECUKINUMAB
     Dosage: UNK (3RD INJECTION)
     Route: 065

REACTIONS (8)
  - Sepsis [Unknown]
  - Furuncle [Unknown]
  - Decreased immune responsiveness [Unknown]
  - Influenza [Unknown]
  - Pneumonia [Unknown]
  - Urticaria [Unknown]
  - Blood glucose increased [Unknown]
  - Subcutaneous abscess [Unknown]
